FAERS Safety Report 21151265 (Version 1)
Quarter: 2022Q3

REPORT INFORMATION
  Report Type: Spontaneous
  Country: US (occurrence: US)
  Receive Date: 20220730
  Receipt Date: 20220730
  Transmission Date: 20221027
  Serious: No
  Sender: FDA-Public Use
  Company Number: US-SANOFI-01190865

PATIENT

DRUGS (2)
  1. DUPIXENT [Interacting]
     Active Substance: DUPILUMAB
     Indication: Nasal polyps
     Dosage: 300 MG
  2. MEASLES-MUMPS-RUBELLA VIRUS VACCINE, LIVE [Suspect]
     Active Substance: MEASLES-MUMPS-RUBELLA VIRUS VACCINE, LIVE

REACTIONS (2)
  - Product use in unapproved indication [Unknown]
  - Contraindicated product administered [Unknown]
